FAERS Safety Report 8319311-2 (Version None)
Quarter: 2012Q2

REPORT INFORMATION
  Report Type: 
  Country: None (occurrence: None)
  Receive Date: 20120427
  Receipt Date: 20100128
  Transmission Date: 20120825
  Serious: No
  Sender: FDA-Public Use
  Company Number: US-TEVA-2009010307

PATIENT
  Sex: Female
  Weight: 49.94 kg

DRUGS (1)
  1. NUVIGIL [Suspect]
     Route: 048
     Dates: start: 20090910

REACTIONS (3)
  - DRUG EFFECT INCREASED [None]
  - AGITATION [None]
  - NERVOUSNESS [None]
